FAERS Safety Report 5696788-2 (Version None)
Quarter: 2008Q2

REPORT INFORMATION
  Report Type: 
  Country: None (occurrence: None)
  Receive Date: 20080408
  Receipt Date: 20061023
  Transmission Date: 20081010
  Serious: No
  Sender: FDA-Public Use
  Company Number: US-BAYER-US-2006-032367

PATIENT
  Age: 19 Year
  Sex: Female
  Weight: 52 kg

DRUGS (3)
  1. YASMIN [Suspect]
     Indication: MENSTRUATION IRREGULAR
     Route: 048
  2. NEXIUM [Concomitant]
     Indication: GASTROOESOPHAGEAL REFLUX DISEASE
  3. TRILEPTAL [Concomitant]
     Indication: CONVULSION

REACTIONS (2)
  - MENORRHAGIA [None]
  - POLYMENORRHOEA [None]
